FAERS Safety Report 8354591-9 (Version None)
Quarter: 2012Q2

REPORT INFORMATION
  Report Type: 
  Country: None (occurrence: None)
  Receive Date: 20120511
  Receipt Date: 20120508
  Transmission Date: 20120825
  Serious: Yes (Hospitalization, Disabling, Other)
  Sender: FDA-Public Use
  Company Number: US-MERCK-1103USA00839

PATIENT
  Age: 68 Year
  Sex: Female

DRUGS (5)
  1. FOSAMAX [Suspect]
     Indication: OSTEOPENIA
     Route: 048
     Dates: start: 19990501, end: 20010101
  2. VITAMIN D (UNSPECIFIED) [Concomitant]
     Route: 065
     Dates: start: 19990101, end: 20100101
  3. CALCIUM (UNSPECIFIED) [Concomitant]
     Route: 065
     Dates: start: 19850101
  4. ALENDRONATE SODIUM [Suspect]
     Indication: OSTEOPENIA
     Route: 048
     Dates: start: 20080301, end: 20101101
  5. FOSAMAX [Suspect]
     Route: 048
     Dates: start: 20010101, end: 20080301

REACTIONS (7)
  - FEMUR FRACTURE [None]
  - VITAMIN D DEFICIENCY [None]
  - ABDOMINAL PAIN [None]
  - FRACTURE [None]
  - LOW TURNOVER OSTEOPATHY [None]
  - UPPER LIMB FRACTURE [None]
  - FALL [None]
